FAERS Safety Report 16057784 (Version 2)
Quarter: 2019Q3

REPORT INFORMATION
  Report Type: Spontaneous
  Country: US (occurrence: US)
  Receive Date: 20190311
  Receipt Date: 20190828
  Transmission Date: 20191004
  Serious: No
  Sender: FDA-Public Use
  Company Number: US-MYLANLABS-2019M1017506

PATIENT
  Sex: Female
  Weight: 15 kg

DRUGS (1)
  1. CLONIDINE TRANSDERMAL SYSTEM [Suspect]
     Active Substance: CLONIDINE
     Indication: CARDIAC DISORDER
     Dosage: UNK
     Route: 062
     Dates: start: 201803, end: 201805

REACTIONS (3)
  - Application site discolouration [Not Recovered/Not Resolved]
  - Application site burn [Not Recovered/Not Resolved]
  - Skin indentation [Not Recovered/Not Resolved]

NARRATIVE: CASE EVENT DATE: 2018
